FAERS Safety Report 7859966-X (Version None)
Quarter: 2011Q4

REPORT INFORMATION
  Report Type: 
  Country: None (occurrence: None)
  Receive Date: 20111025
  Receipt Date: 20111017
  Transmission Date: 20120403
  Serious: Yes (Death)
  Sender: FDA-Public Use
  Company Number: 2011100045

PATIENT
  Age: 63 Year
  Sex: Male

DRUGS (5)
  1. ONSOLIS [Suspect]
     Indication: CANCER PAIN
     Dosage: TO BE TITRATED UP TO 4-200 MCG FILMS (200 MCG, UP TO 4 TIMES DAILY), BU
     Route: 002
     Dates: start: 20100218, end: 20100401
  2. COMPAZINE [Concomitant]
  3. ZOFRAN [Concomitant]
  4. OXYCONTIN [Concomitant]
  5. PERCOCET [Concomitant]

REACTIONS (2)
  - LUNG CANCER METASTATIC [None]
  - NEOPLASM PROGRESSION [None]
